FAERS Safety Report 10367762 (Version 1)
Quarter: 2014Q3

REPORT INFORMATION
  Report Type: Spontaneous
  Country: US (occurrence: US)
  Receive Date: 20140807
  Receipt Date: 20140807
  Transmission Date: 20150326
  Serious: Yes (Other)
  Sender: FDA-Public Use
  Company Number: US-JNJFOC-20140718402

PATIENT
  Sex: Female
  Weight: 72.58 kg

DRUGS (4)
  1. ELMIRON [Suspect]
     Active Substance: PENTOSAN POLYSULFATE SODIUM
     Indication: CYSTITIS INTERSTITIAL
     Dosage: ABOUT EIGHT YEARS PRIOR TO REPORTING
     Route: 048
  2. AMLODIPINE [Concomitant]
     Active Substance: AMLODIPINE BESYLATE
     Indication: BLOOD PRESSURE
     Dosage: ABOUT FIVE YEARS PRIOR TO REPORTING
     Route: 048
  3. ACYCLOVIR. [Concomitant]
     Active Substance: ACYCLOVIR
     Indication: HERPES VIRUS INFECTION
     Dosage: ABOUT TWO YEARS PRIOR TO REPORTING
     Route: 048
     Dates: start: 2012
  4. IMITREX [Concomitant]
     Active Substance: SUMATRIPTAN\SUMATRIPTAN SUCCINATE
     Indication: MIGRAINE
     Dosage: ABOUT TEN YEARS PRIOR TO REPORTING
     Route: 065

REACTIONS (4)
  - Incorrect drug administration duration [Unknown]
  - Incorrect dose administered [Unknown]
  - Gastrooesophageal reflux disease [Not Recovered/Not Resolved]
  - Oesophageal disorder [Not Recovered/Not Resolved]

NARRATIVE: CASE EVENT DATE: 2014
